FAERS Safety Report 20712452 (Version 1)
Quarter: 2022Q2

REPORT INFORMATION
  Report Type: Spontaneous
  Country: US (occurrence: US)
  Receive Date: 20220415
  Receipt Date: 20220415
  Transmission Date: 20220721
  Serious: No
  Sender: FDA-Public Use
  Company Number: US-Apnar-000098

PATIENT
  Sex: Male

DRUGS (16)
  1. TERAZOSIN HYDROCHLORIDE [Suspect]
     Active Substance: TERAZOSIN HYDROCHLORIDE
     Indication: Product used for unknown indication
  2. NORVASC [Concomitant]
     Active Substance: AMLODIPINE BESYLATE
     Dosage: TAKE 1 TABLET BY MOUTH DAILY STRENGTH 5MG
     Dates: start: 20200506
  3. TYLENOL EXTRA STRENGTH [Concomitant]
     Active Substance: ACETAMINOPHEN
     Dosage: TAKE 500MG BY MOUTH EV
  4. ASPIRIN [Concomitant]
     Active Substance: ASPIRIN
     Dosage: TAKE 1 TABLET BY MOUTH DAILY
     Route: 048
  5. TENORMIN [Concomitant]
     Active Substance: ATENOLOL
     Dosage: STRENGTH: 25MG TAKE 1 TABLET BY MOUTH DAILY
     Dates: start: 20210209
  6. LIORESAL [Concomitant]
     Active Substance: BACLOFEN
     Dosage: TAKE 1 TABLET BY MOUTH  STRENGTH 10MG
     Dates: start: 20201221
  7. CALCIUM CARBONATE [Concomitant]
     Active Substance: CALCIUM CARBONATE
     Dosage: TAKE 500MG BY MOUTH DAILY STRENGTH 500MG
  8. CALCIUM CARBONATE\VITAMIN D [Concomitant]
     Active Substance: CALCIUM CARBONATE\VITAMIN D
     Dosage: TAKE 1 MG BY MOUTH DAILY STRENGTH 1MG
  9. SINEMET [Concomitant]
     Active Substance: CARBIDOPA\LEVODOPA
     Dosage: TAKE 1 TABLET BY MOUTH
     Dates: start: 20201221
  10. LOTRISONE [Concomitant]
     Active Substance: BETAMETHASONE DIPROPIONATE\CLOTRIMAZOLE
     Dosage: TO APPLY BID 10DAYS
  11. VITAMIN B12 [Concomitant]
     Active Substance: CYANOCOBALAMIN
     Dosage: STRENGTH 1000MCG, TAKE BY MOUTH
  12. CYMBALTA [Concomitant]
     Active Substance: DULOXETINE HYDROCHLORIDE
     Dosage: STRENGTH 20 MG, TAKE 1 CAPSULE BY MOUTH
     Dates: start: 20200730
  13. LASIX [Concomitant]
     Active Substance: FUROSEMIDE
     Dosage: TAKE 1/2 TABLET BY MOUTH STRENGTH 20MG
     Dates: start: 20201026
  14. MIRALAX [Concomitant]
     Active Substance: POLYETHYLENE GLYCOL 3350
     Dosage: STRENGTH 17G, TAKE 17G BY MOUTH DAILY
     Dates: start: 20180518
  15. CRESTOR [Concomitant]
     Active Substance: ROSUVASTATIN CALCIUM
     Dosage: TAKE 1 TABLET BY MOUTH DAILY STRENGTH 10MG
     Dates: start: 20200903
  16. VITAMIN B COMPLEX [Concomitant]
     Active Substance: CYANOCOBALAMIN\DEXPANTHENOL\NIACINAMIDE\PYRIDOXINE HYDROCHLORIDE\RIBOFLAVIN 5^-PHOSPHATE SODIUM\THIA
     Dosage: TAKE 1 CAPSULE BY MOUTH DAILY

REACTIONS (1)
  - Dyspnoea [Unknown]
